FAERS Safety Report 6654565-X (Version None)
Quarter: 2010Q1

REPORT INFORMATION
  Report Type: 
  Country: None (occurrence: None)
  Receive Date: 20100326
  Receipt Date: 20100315
  Transmission Date: 20100710
  Serious: Yes (Other)
  Sender: FDA-Public Use
  Company Number: US-PFIZER INC-2010022154

PATIENT
  Sex: Male
  Weight: 70.295 kg

DRUGS (3)
  1. ZOLOFT [Suspect]
     Indication: INSOMNIA
     Dosage: 50 MG, 1X/DAY
  2. ZOLOFT [Suspect]
     Indication: AGITATION
     Dosage: 25 MG, 1X/DAY
     Route: 048
  3. ZOLOFT [Suspect]
     Indication: DEPRESSION

REACTIONS (4)
  - BLADDER CANCER [None]
  - DRUG INEFFECTIVE [None]
  - DYSGEUSIA [None]
  - INSOMNIA [None]
